FAERS Safety Report 6093029-1 (Version None)
Quarter: 2009Q1

REPORT INFORMATION
  Report Type: 
  Country: None (occurrence: None)
  Receive Date: 20090224
  Receipt Date: 20090210
  Transmission Date: 20090719
  Serious: Yes (Hospitalization)
  Sender: FDA-Public Use
  Company Number: 2009000391

PATIENT
  Age: 72 Year
  Sex: Female

DRUGS (1)
  1. ERLOTINIB (ERLOTINIB) (TABLET) (ERLOTINIB) [Suspect]
     Indication: LUNG NEOPLASM MALIGNANT
     Dosage: 100 MG QD, ORAL
     Route: 048
     Dates: start: 20080709

REACTIONS (1)
  - SUBILEUS [None]
